FAERS Safety Report 25877272 (Version 1)
Quarter: 2025Q4

REPORT INFORMATION
  Report Type: Spontaneous
  Country: EU (occurrence: EU)
  Receive Date: 20251003
  Receipt Date: 20251003
  Transmission Date: 20260118
  Serious: Yes (Death)
  Sender: GENMAB
  Company Number: EU-ABBVIE-6486253

PATIENT
  Age: 87 Year
  Sex: Male

DRUGS (4)
  1. EPCORITAMAB [Suspect]
     Active Substance: EPCORITAMAB
     Indication: Diffuse large B-cell lymphoma
     Dosage: 0.16 MILLIGRAM, WEEKLY (9 CYCLES)
     Route: 058
     Dates: start: 202411
  2. EPCORITAMAB [Suspect]
     Active Substance: EPCORITAMAB
     Dosage: 0.8 MILLIGRAM, WEEKLY (9 CYCLES)
     Route: 058
     Dates: start: 2024
  3. EPCORITAMAB [Suspect]
     Active Substance: EPCORITAMAB
     Dosage: 48 MILLIGRAM, WEEKLY (9 CYCLES)
     Route: 058
  4. EPCORITAMAB [Suspect]
     Active Substance: EPCORITAMAB
     Dosage: 48 MILLIGRAM, 1Q2W (9 CYCLES)
     Route: 058
     Dates: end: 202506

REACTIONS (8)
  - Death [Fatal]
  - Muscle strength abnormal [Unknown]
  - General physical health deterioration [Unknown]
  - Somnolence [Unknown]
  - Apathy [Unknown]
  - Decreased appetite [Unknown]
  - COVID-19 pneumonia [Unknown]
  - Cytokine release syndrome [Recovered/Resolved]

NARRATIVE: CASE EVENT DATE: 20240101
